FAERS Safety Report 15824943 (Version 2)
Quarter: 2019Q1

REPORT INFORMATION
  Report Type: Spontaneous
  Country: US (occurrence: US)
  Receive Date: 20190115
  Receipt Date: 20190325
  Transmission Date: 20190417
  Serious: No
  Sender: FDA-Public Use
  Company Number: US-PFIZER INC-2019017786

PATIENT
  Sex: Male

DRUGS (1)
  1. ZITHROMAX [Suspect]
     Active Substance: AZITHROMYCIN DIHYDRATE
     Dosage: UNK

REACTIONS (2)
  - Eye irritation [Recovered/Resolved]
  - Ocular hyperaemia [Recovered/Resolved]
